FAERS Safety Report 12838522 (Version 1)
Quarter: 2016Q4

REPORT INFORMATION
  Report Type: Spontaneous
  Country: US (occurrence: US)
  Receive Date: 20161008
  Receipt Date: 20161008
  Transmission Date: 20170207
  Serious: Yes (Death, Hospitalization)
  Sender: FDA-Public Use
  Company Number: None

PATIENT
  Age: 56 Year
  Sex: Female
  Weight: 59.3 kg

DRUGS (3)
  1. CYTARABINE. [Suspect]
     Active Substance: CYTARABINE
     Dates: end: 20160906
  2. PRAVASTATIN SODIUM. [Suspect]
     Active Substance: PRAVASTATIN SODIUM
     Dates: end: 20160906
  3. IDARUBICIN [Suspect]
     Active Substance: IDARUBICIN
     Dates: end: 20160904

REACTIONS (10)
  - Pneumonia [None]
  - Pleural effusion [None]
  - Hypotension [None]
  - Dyspnoea [None]
  - Hypoxia [None]
  - Respiratory failure [None]
  - Sepsis [None]
  - Atrial fibrillation [None]
  - Blood culture positive [None]
  - Neutropenia [None]

NARRATIVE: CASE EVENT DATE: 20160930
